FAERS Safety Report 24790454 (Version 2)
Quarter: 2024Q4

REPORT INFORMATION
  Report Type: Spontaneous
  Country: LB (occurrence: LB)
  Receive Date: 20241230
  Receipt Date: 20241231
  Transmission Date: 20250114
  Serious: Yes (Other)
  Sender: NANJING KING-FRIEND BIOCHEMICAL PHARMACEUTICAL
  Company Number: LB-NKFPHARMA-2024MPLIT00456

PATIENT
  Age: 19 Year
  Sex: Male

DRUGS (1)
  1. ADALIMUMAB [Suspect]
     Active Substance: ADALIMUMAB
     Indication: Hidradenitis
     Dosage: FOR THE PAST 3 MONTHS
     Route: 065

REACTIONS (1)
  - Pyoderma gangrenosum [Recovered/Resolved]
